FAERS Safety Report 5094823-6 (Version None)
Quarter: 2006Q3

REPORT INFORMATION
  Report Type: 
  Country: None (occurrence: None)
  Receive Date: 20060830
  Receipt Date: 20060830
  Transmission Date: 20061208
  Serious: No
  Sender: FDA-Public Use
  Company Number: None

PATIENT
  Sex: Female
  Weight: 46 kg

DRUGS (2)
  1. CARBOPLATIN [Suspect]
     Dosage: 684 MG
  2. TAXOL [Suspect]
     Dosage: 283  MG SEE IMAGE
     Route: 042

REACTIONS (1)
  - PLATELET COUNT DECREASED [None]
